FAERS Safety Report 10244771 (Version 1)
Quarter: 2014Q1

REPORT INFORMATION
  Report Type: Spontaneous
  Country: US (occurrence: None)
  Receive Date: 20140306
  Receipt Date: 20140306
  Transmission Date: 20141002
  Serious: Yes (Other)
  Sender: FDA-Public Use
  Company Number: 163-21880-13034588

PATIENT
  Age: 56 Year
  Sex: Male
  Weight: 108 kg

DRUGS (5)
  1. REVLIMID (LENALIDOMIDE) (15 MILLIGRAM, CAPSULES) [Suspect]
     Indication: PLASMA CELL MYELOMA
     Route: 048
     Dates: start: 201207, end: 2012
  2. GABAPENTIN (GABAPENTIN) (CAPSULES) [Concomitant]
  3. VASELINE WHITE PETROLEUM (PARAFFIN SOFT) (JELLY) [Concomitant]
  4. COUMADIN (WARFARIN SODIUM) (TABLETS) [Concomitant]
  5. AQUAPHOR HEALING (AQUAPHOR HEALING OINTMENT) (OINTMENT) [Concomitant]

REACTIONS (1)
  - Pulmonary embolism [None]
